FAERS Safety Report 20442345 (Version 2)
Quarter: 2022Q1

REPORT INFORMATION
  Report Type: Spontaneous
  Country: CO (occurrence: CO)
  Receive Date: 20220208
  Receipt Date: 20220210
  Transmission Date: 20220423
  Serious: Yes (Other)
  Sender: FDA-Public Use
  Company Number: CO-NOVARTISPH-NVSC2022CO025767

PATIENT

DRUGS (3)
  1. ELTROMBOPAG [Suspect]
     Active Substance: ELTROMBOPAG
     Indication: Immune thrombocytopenia
     Dosage: 75 MG, QD
     Route: 048
  2. RITUXIMAB [Suspect]
     Active Substance: RITUXIMAB
     Indication: Product used for unknown indication
     Dosage: 475 MG/ML, WEEKLY
     Route: 042
  3. ROMIPLOSTIM [Concomitant]
     Active Substance: ROMIPLOSTIM
     Indication: Product used for unknown indication
     Dosage: 600 UG, QW
     Route: 058

REACTIONS (9)
  - Haematochezia [Unknown]
  - Disease recurrence [Unknown]
  - Blood urine present [Unknown]
  - Heavy menstrual bleeding [Unknown]
  - Haemorrhage [Unknown]
  - Gingival bleeding [Unknown]
  - Epistaxis [Unknown]
  - Platelet count decreased [Unknown]
  - Treatment failure [Unknown]

NARRATIVE: CASE EVENT DATE: 20190812
